FAERS Safety Report 12836940 (Version 3)
Quarter: 2017Q2

REPORT INFORMATION
  Report Type: Spontaneous
  Country: None (occurrence: US)
  Receive Date: 20161011
  Receipt Date: 20170523
  Transmission Date: 20170830
  Serious: No
  Sender: FDA-Public Use
  Company Number: US-TEVA-696749USA

PATIENT
  Sex: Female

DRUGS (4)
  1. PROVIGIL [Suspect]
     Active Substance: MODAFINIL
     Indication: FATIGUE
     Route: 065
  2. PROVIGIL [Suspect]
     Active Substance: MODAFINIL
     Indication: SOMNOLENCE
  3. PROVIGIL [Suspect]
     Active Substance: MODAFINIL
     Indication: LYME DISEASE
  4. PROVIGIL [Suspect]
     Active Substance: MODAFINIL
     Indication: EXECUTIVE DYSFUNCTION

REACTIONS (1)
  - Off label use [Unknown]
